FAERS Safety Report 6171342-7 (Version None)
Quarter: 2009Q2

REPORT INFORMATION
  Report Type: 
  Country: None (occurrence: None)
  Receive Date: 20090429
  Receipt Date: 20090423
  Transmission Date: 20091009
  Serious: Yes (Other)
  Sender: FDA-Public Use
  Company Number: US-AMGEN-US342649

PATIENT
  Sex: Male
  Weight: 88.2 kg

DRUGS (5)
  1. NPLATE [Suspect]
     Indication: IDIOPATHIC THROMBOCYTOPENIC PURPURA
     Dates: start: 20081002
  2. IMITREX [Concomitant]
     Route: 048
  3. COMPAZINE [Concomitant]
  4. NORVASC [Concomitant]
     Route: 048
  5. LORTAB [Concomitant]

REACTIONS (4)
  - BASOPHIL COUNT INCREASED [None]
  - EOSINOPHIL COUNT INCREASED [None]
  - MONOCYTE COUNT INCREASED [None]
  - WHITE BLOOD CELL COUNT INCREASED [None]
